FAERS Safety Report 17551523 (Version 1)
Quarter: 2020Q1

REPORT INFORMATION
  Report Type: Spontaneous
  Country: US (occurrence: US)
  Receive Date: 20200317
  Receipt Date: 20200317
  Transmission Date: 20200409
  Serious: No
  Sender: FDA-Public Use
  Company Number: US-SA-2020SA059680

PATIENT
  Sex: Male

DRUGS (11)
  1. ASPIRIN [ACETYLSALICYLIC ACID] [Concomitant]
     Active Substance: ASPIRIN
  2. ISOSORBIDE. [Concomitant]
     Active Substance: ISOSORBIDE
  3. LANSOPRAZOLE. [Concomitant]
     Active Substance: LANSOPRAZOLE
     Dosage: UNK MG
  4. LEVOTHYROXIN [Concomitant]
     Active Substance: LEVOTHYROXINE
  5. NOVOLOG [Concomitant]
     Active Substance: INSULIN ASPART
  6. LISINOPRIL. [Concomitant]
     Active Substance: LISINOPRIL
  7. NITROSTAT [Concomitant]
     Active Substance: NITROGLYCERIN
  8. PANTOPRAZOLE [Concomitant]
     Active Substance: PANTOPRAZOLE
  9. PRALUENT [Suspect]
     Active Substance: ALIROCUMAB
     Indication: HYPERTENSIVE HEART DISEASE
     Dosage: 150 MG, QOW
     Route: 058
  10. METOPROLOL. [Concomitant]
     Active Substance: METOPROLOL
  11. NOVOLIN N [Concomitant]
     Active Substance: INSULIN HUMAN

REACTIONS (1)
  - Product dose omission [Unknown]
